FAERS Safety Report 15287149 (Version 1)
Quarter: 2018Q3

REPORT INFORMATION
  Report Type: Spontaneous
  Country: JP (occurrence: JP)
  Receive Date: 20180817
  Receipt Date: 20180817
  Transmission Date: 20181010
  Serious: Yes (Other)
  Sender: FDA-Public Use
  Company Number: JP-ROCHE-2170953

PATIENT
  Age: 9 Decade
  Sex: Female

DRUGS (2)
  1. TACROLIMUS HYDRATE [Suspect]
     Active Substance: TACROLIMUS
     Indication: PRODUCT USED FOR UNKNOWN INDICATION
     Dosage: DOSAGE IS UNCERTAIN.
     Route: 065
  2. CELLCEPT [Suspect]
     Active Substance: MYCOPHENOLATE MOFETIL\MYCOPHENOLATE MOFETIL HYDROCHLORIDE
     Indication: LUPUS NEPHRITIS
     Route: 048
     Dates: end: 2018

REACTIONS (1)
  - Myocarditis [Unknown]

NARRATIVE: CASE EVENT DATE: 20180720
